FAERS Safety Report 7344151-0 (Version None)
Quarter: 2011Q1

REPORT INFORMATION
  Report Type: 
  Country: None (occurrence: None)
  Receive Date: 20110310
  Receipt Date: 20100713
  Transmission Date: 20110831
  Serious: No
  Sender: FDA-Public Use
  Company Number: A0870131A

PATIENT
  Age: 39 Year

DRUGS (3)
  1. NICORETTE (MINT) [Suspect]
     Dates: end: 20100630
  2. NICOTINE POLACRILEX [Suspect]
  3. NICOTINE POLACRILEX [Suspect]

REACTIONS (3)
  - CHEST PAIN [None]
  - INTENTIONAL DRUG MISUSE [None]
  - NAUSEA [None]
